FAERS Safety Report 7408000-4 (Version None)
Quarter: 2011Q2

REPORT INFORMATION
  Report Type: 
  Country: None (occurrence: None)
  Receive Date: 20110412
  Receipt Date: 20110408
  Transmission Date: 20111010
  Serious: Yes (Death, Other)
  Sender: FDA-Public Use
  Company Number: US-PFIZER INC-2006081472

PATIENT
  Sex: Male

DRUGS (1)
  1. NEURONTIN [Suspect]
     Indication: BACK PAIN
     Dosage: 300 MG, UNK
     Dates: start: 20040101

REACTIONS (10)
  - FEELING OF DESPAIR [None]
  - ANGER [None]
  - DRUG INEFFECTIVE [None]
  - PSYCHOTIC DISORDER [None]
  - INSOMNIA [None]
  - PARANOIA [None]
  - AGGRESSION [None]
  - DISTURBANCE IN ATTENTION [None]
  - COMPLETED SUICIDE [None]
  - DEPRESSION [None]
